FAERS Safety Report 10703612 (Version 1)
Quarter: 2015Q1

REPORT INFORMATION
  Report Type: Report from Study
  Country: US (occurrence: US)
  Receive Date: 20150112
  Receipt Date: 20150112
  Transmission Date: 20150721
  Serious: Yes (Hospitalization)
  Sender: FDA-Public Use
  Company Number: US-JNJFOC-20141220800

PATIENT
  Age: 53 Year
  Sex: Male
  Weight: 72.58 kg

DRUGS (8)
  1. VENLAFAXINE [Concomitant]
     Active Substance: VENLAFAXINE HYDROCHLORIDE
     Indication: HOT FLUSH
     Dosage: 1.5 PER DAY
     Route: 065
     Dates: start: 2012
  2. METOPROLOL [Concomitant]
     Active Substance: METOPROLOL
     Indication: HEART RATE ABNORMAL
     Dosage: 1.5 PER DAY
     Route: 065
     Dates: start: 2002
  3. ASPIRIN. [Concomitant]
     Active Substance: ASPIRIN
     Indication: CARDIAC DISORDER
     Dosage: 1.5 PER DAY
     Route: 065
     Dates: start: 2002
  4. VALSARTAN. [Concomitant]
     Active Substance: VALSARTAN
     Indication: BLOOD PRESSURE ABNORMAL
     Dosage: 1.5 PER DAY
     Route: 065
     Dates: start: 2002
  5. METOPROLOL [Concomitant]
     Active Substance: METOPROLOL
     Indication: BLOOD PRESSURE ABNORMAL
     Dosage: 1.5 PER DAY
     Route: 065
     Dates: start: 2002
  6. INVOKANA [Suspect]
     Active Substance: CANAGLIFLOZIN
     Indication: DIABETES MELLITUS
     Route: 065
     Dates: start: 201310, end: 201312
  7. VALSARTAN. [Concomitant]
     Active Substance: VALSARTAN
     Indication: HEART RATE ABNORMAL
     Dosage: 1.5 PER DAY
     Route: 065
     Dates: start: 2002
  8. INVOKANA [Suspect]
     Active Substance: CANAGLIFLOZIN
     Indication: DIABETES MELLITUS
     Route: 065
     Dates: start: 201312, end: 20131228

REACTIONS (9)
  - Dehydration [Not Recovered/Not Resolved]
  - Thirst [Unknown]
  - Palpitations [Not Recovered/Not Resolved]
  - Feeling jittery [Unknown]
  - Vision blurred [Not Recovered/Not Resolved]
  - Adverse drug reaction [Unknown]
  - Loss of consciousness [Not Recovered/Not Resolved]
  - Pollakiuria [Unknown]
  - Dizziness [Not Recovered/Not Resolved]

NARRATIVE: CASE EVENT DATE: 201312
